FAERS Safety Report 17395018 (Version 2)
Quarter: 2020Q2

REPORT INFORMATION
  Report Type: Report from Study
  Country: None (occurrence: IN)
  Receive Date: 20200210
  Receipt Date: 20200512
  Transmission Date: 20200713
  Serious: Yes (Death)
  Sender: FDA-Public Use
  Company Number: IN-ABBVIE-20K-078-3266670-00

PATIENT
  Age: 85 Year
  Sex: Male

DRUGS (1)
  1. IMBRUVICA [Suspect]
     Active Substance: IBRUTINIB
     Indication: CHRONIC LYMPHOCYTIC LEUKAEMIA
     Route: 048
     Dates: start: 20200111

REACTIONS (1)
  - Death [Fatal]
